FAERS Safety Report 8299581-X (Version None)
Quarter: 2012Q2

REPORT INFORMATION
  Report Type: 
  Country: None (occurrence: None)
  Receive Date: 20120419
  Receipt Date: 20120411
  Transmission Date: 20120825
  Serious: Yes (Hospitalization)
  Sender: FDA-Public Use
  Company Number: CA-GLAXOSMITHKLINE-A0931212A

PATIENT
  Sex: Female
  Weight: 77 kg

DRUGS (12)
  1. ADVAIR DISKUS 100/50 [Suspect]
     Indication: CHRONIC OBSTRUCTIVE PULMONARY DISEASE
     Dosage: 1PUFF TWICE PER DAY
     Route: 055
     Dates: start: 20110101
  2. LIPITOR [Concomitant]
  3. MULTI-VITAMIN [Concomitant]
  4. ALTACE [Concomitant]
     Indication: BLOOD PRESSURE
  5. VENTOLIN [Concomitant]
  6. VITAMIN D [Concomitant]
  7. SPIRIVA [Concomitant]
     Indication: PRODUCT USED FOR UNKNOWN INDICATION
     Route: 065
  8. ACID REFLUX MED. [Concomitant]
     Indication: GASTROOESOPHAGEAL REFLUX DISEASE
  9. UNKNOWN STOMACH MEDICATION [Concomitant]
     Indication: ABDOMINAL DISCOMFORT
  10. SYNTHROID [Concomitant]
  11. EFFEXOR [Concomitant]
     Indication: DEPRESSION
  12. AGGRENOX [Concomitant]

REACTIONS (14)
  - FALL [None]
  - FATIGUE [None]
  - DEHYDRATION [None]
  - OROPHARYNGEAL PAIN [None]
  - COUGH [None]
  - NASOPHARYNGITIS [None]
  - PALLOR [None]
  - LYMPH NODE PAIN [None]
  - BRONCHITIS [None]
  - HYPERHIDROSIS [None]
  - ODYNOPHAGIA [None]
  - DYSPHONIA [None]
  - DRY THROAT [None]
  - HYPOKINESIA [None]
